FAERS Safety Report 7323033-4 (Version None)
Quarter: 2011Q1

REPORT INFORMATION
  Report Type: 
  Country: None (occurrence: None)
  Receive Date: 20110301
  Receipt Date: 20110301
  Transmission Date: 20110831
  Serious: Yes (Hospitalization)
  Sender: FDA-Public Use
  Company Number: PHHO2007BE14980

PATIENT
  Sex: Male

DRUGS (4)
  1. CREON [Concomitant]
  2. IMODIUM [Concomitant]
  3. SANDOSTATIN LAR [Suspect]
     Indication: CARCINOID TUMOUR
     Dosage: DOUBLE BLIND
     Route: 048
     Dates: start: 20070410, end: 20070906
  4. PLACEBO [Suspect]
     Indication: CARCINOID TUMOUR
     Dosage: PLACEBO
     Route: 048
     Dates: start: 20070416, end: 20070906

REACTIONS (7)
  - BILE DUCT OBSTRUCTION [None]
  - HYPERBILIRUBINAEMIA [None]
  - DRUG INEFFECTIVE [None]
  - BILE DUCT STENT INSERTION [None]
  - METASTASES TO LYMPH NODES [None]
  - DISEASE PROGRESSION [None]
  - JAUNDICE [None]
